FAERS Safety Report 20388849 (Version 5)
Quarter: 2022Q3

REPORT INFORMATION
  Report Type: Spontaneous
  Country: JP (occurrence: JP)
  Receive Date: 20220128
  Receipt Date: 20220714
  Transmission Date: 20221027
  Serious: Yes (Hospitalization, Other)
  Sender: FDA-Public Use
  Company Number: JP-ONO-2021JP032105

PATIENT
  Age: 55 Year
  Sex: Female
  Weight: 46 kg

DRUGS (9)
  1. OPDIVO [Suspect]
     Active Substance: NIVOLUMAB
     Indication: Gastric cancer
     Route: 041
     Dates: start: 20211214, end: 20211214
  2. OXALIPLATIN [Suspect]
     Active Substance: OXALIPLATIN
     Indication: Gastric cancer
     Route: 041
     Dates: start: 20211214, end: 20211214
  3. OXALIPLATIN [Suspect]
     Active Substance: OXALIPLATIN
     Route: 041
     Dates: start: 20220126
  4. GIMERACIL\OTERACIL\TEGAFUR [Suspect]
     Active Substance: GIMERACIL\OTERACIL\TEGAFUR
     Indication: Gastric cancer
     Route: 048
     Dates: start: 20211214, end: 20211228
  5. GIMERACIL\OTERACIL\TEGAFUR [Suspect]
     Active Substance: GIMERACIL\OTERACIL\TEGAFUR
     Route: 048
     Dates: start: 20220126
  6. POLARAMINE [Suspect]
     Active Substance: DEXCHLORPHENIRAMINE MALEATE
     Indication: Prophylaxis
     Route: 041
     Dates: start: 20211214
  7. ALOXI [Concomitant]
     Active Substance: PALONOSETRON HYDROCHLORIDE
     Indication: Prophylaxis
     Dosage: 0.75 MG, EVERYDAY
     Route: 041
     Dates: start: 20211214, end: 20211214
  8. DECADRON [Concomitant]
     Active Substance: DEXAMETHASONE
     Indication: Prophylaxis
     Route: 041
     Dates: start: 20211214
  9. PREDONINE [Concomitant]
     Active Substance: PREDNISOLONE
     Indication: Familial mediterranean fever
     Route: 065

REACTIONS (9)
  - Postrenal failure [Recovering/Resolving]
  - Urinary tract infection [Recovering/Resolving]
  - Somnolence [Unknown]
  - Hypoaesthesia [Unknown]
  - Febrile neutropenia [Recovered/Resolved]
  - Hydronephrosis [Unknown]
  - Shock symptom [Unknown]
  - Pancreatic enzymes increased [Recovering/Resolving]
  - White blood cell count abnormal [Unknown]

NARRATIVE: CASE EVENT DATE: 20211214
